FAERS Safety Report 4544707-4 (Version None)
Quarter: 2004Q4

REPORT INFORMATION
  Report Type: 
  Country: None (occurrence: None)
  Receive Date: 20041230
  Receipt Date: 20041221
  Transmission Date: 20050328
  Serious: Yes (Hospitalization)
  Sender: FDA-Public Use
  Company Number: ZONI002083

PATIENT
  Age: 69 Year
  Sex: Female

DRUGS (4)
  1. EXCEGRAN (ZONISAMIDE) [Suspect]
     Indication: CONVULSION PROPHYLAXIS
     Dosage: 200 MG, 1 IN 1 D; ORAL
     Route: 048
     Dates: start: 20041118, end: 20041213
  2. PHENOBARBITAL TAB [Concomitant]
  3. PASIL (PAZUFLOXACIN) [Concomitant]
  4. VANCOMYCIN [Concomitant]

REACTIONS (7)
  - CAROTID ANEURYSM RUPTURE [None]
  - DERMATITIS EXFOLIATIVE [None]
  - DRUG ERUPTION [None]
  - ERYTHEMA MULTIFORME [None]
  - PYREXIA [None]
  - RUPTURED CEREBRAL ANEURYSM [None]
  - SUBARACHNOID HAEMORRHAGE [None]
